FAERS Safety Report 24981535 (Version 1)
Quarter: 2025Q1

REPORT INFORMATION
  Report Type: Spontaneous
  Country: CN (occurrence: CN)
  Receive Date: 20250218
  Receipt Date: 20250218
  Transmission Date: 20250408
  Serious: Yes (Other)
  Sender: FRESENIUS KABI
  Company Number: CN-FreseniusKabi-FK202502622

PATIENT
  Age: 63 Year
  Sex: Male

DRUGS (1)
  1. PROPOFOL [Suspect]
     Active Substance: PROPOFOL
     Indication: Sedation
     Dosage: ROUTE OF ADMIN: INTRAVENOUS MICROPUMP?FORM OF ADMIN.: INJECTION?AT 09:00 ON 08FEB, THE DOSE WAS DECR
     Dates: start: 20250206, end: 20250208

REACTIONS (1)
  - Tic [Recovered/Resolved]

NARRATIVE: CASE EVENT DATE: 20250208
